FAERS Safety Report 4522349-4 (Version None)
Quarter: 2004Q4

REPORT INFORMATION
  Report Type: 
  Country: None (occurrence: None)
  Receive Date: 20041209
  Receipt Date: 20041208
  Transmission Date: 20050328
  Serious: Yes (Life-Threatening)
  Sender: FDA-Public Use
  Company Number: US-GLAXOSMITHKLINE-A0536627A

PATIENT
  Age: 78 Year
  Sex: Female

DRUGS (9)
  1. AVANDIA [Suspect]
     Dosage: 4MG PER DAY
     Route: 048
  2. LACTOSE [Concomitant]
     Indication: DRUG USE FOR UNKNOWN INDICATION
  3. CATAPRES [Concomitant]
     Indication: DRUG USE FOR UNKNOWN INDICATION
  4. KLOR-CON [Concomitant]
     Indication: DRUG USE FOR UNKNOWN INDICATION
  5. LISINOPRIL [Concomitant]
     Indication: DRUG USE FOR UNKNOWN INDICATION
  6. TIAZAC [Concomitant]
     Indication: DRUG USE FOR UNKNOWN INDICATION
  7. MODURETIC 5-50 [Concomitant]
     Indication: DRUG USE FOR UNKNOWN INDICATION
  8. LIPITOR [Concomitant]
     Indication: DRUG USE FOR UNKNOWN INDICATION
  9. GLIPIZIDE [Concomitant]
     Indication: DRUG USE FOR UNKNOWN INDICATION

REACTIONS (1)
  - BREAST CANCER RECURRENT [None]
